FAERS Safety Report 11430279 (Version 1)
Quarter: 2015Q3

REPORT INFORMATION
  Report Type: Spontaneous
  Country: US (occurrence: US)
  Receive Date: 20150828
  Receipt Date: 20150828
  Transmission Date: 20151125
  Serious: No
  Sender: FDA-Public Use
  Company Number: PHEH2015US004535

PATIENT
  Sex: Female

DRUGS (3)
  1. ONFI [Suspect]
     Active Substance: CLOBAZAM
     Indication: SEIZURE
     Dosage: 20 MG, QD
     Route: 065
  2. TRILEPTAL [Suspect]
     Active Substance: OXCARBAZEPINE
     Indication: SEIZURE
     Dosage: UNK
     Route: 065
  3. ONFI [Suspect]
     Active Substance: CLOBAZAM
     Dosage: 40 MG, QD
     Route: 065

REACTIONS (6)
  - Aura [Not Recovered/Not Resolved]
  - Generalised tonic-clonic seizure [Not Recovered/Not Resolved]
  - Epilepsy [Unknown]
  - Partial seizures [Not Recovered/Not Resolved]
  - Hypersensitivity [Unknown]
  - Disease progression [Unknown]
